FAERS Safety Report 6827191-7 (Version None)
Quarter: 2010Q3

REPORT INFORMATION
  Report Type: 
  Country: None (occurrence: None)
  Receive Date: 20100709
  Receipt Date: 20100628
  Transmission Date: 20110219
  Serious: Yes (Hospitalization)
  Sender: FDA-Public Use
  Company Number: US-ELI_LILLY_AND_COMPANY-US201007000195

PATIENT
  Sex: Female

DRUGS (1)
  1. ADCIRCA [Suspect]
     Indication: PULMONARY ARTERIAL HYPERTENSION

REACTIONS (1)
  - HOSPITALISATION [None]
